FAERS Safety Report 5109819-5 (Version None)
Quarter: 2006Q3

REPORT INFORMATION
  Report Type: 
  Country: None (occurrence: None)
  Receive Date: 20060918
  Receipt Date: 20060918
  Transmission Date: 20061208
  Serious: Yes (Hospitalization)
  Sender: FDA-Public Use
  Company Number: None

PATIENT
  Sex: Male
  Weight: 103 kg

DRUGS (1)
  1. VARENICLINE 1MG [Suspect]
     Indication: SMOKING CESSATION THERAPY
     Dosage: 1 MG QD OR BID PO
     Route: 048
     Dates: start: 20060815, end: 20060908

REACTIONS (7)
  - ANAEMIA [None]
  - DUODENAL ULCER [None]
  - DYSPNOEA [None]
  - GASTROINTESTINAL EROSION [None]
  - IRON DEFICIENCY [None]
  - PEPTIC ULCER [None]
  - UPPER GASTROINTESTINAL HAEMORRHAGE [None]
